FAERS Safety Report 21485368 (Version 1)
Quarter: 2022Q4

REPORT INFORMATION
  Report Type: Spontaneous
  Country: DK (occurrence: DK)
  Receive Date: 20221020
  Receipt Date: 20221020
  Transmission Date: 20230113
  Serious: Yes (Other)
  Sender: FDA-Public Use
  Company Number: None

PATIENT
  Age: 44 Year
  Sex: Female

DRUGS (1)
  1. REMICADE [Suspect]
     Active Substance: INFLIXIMAB
     Indication: Colitis ulcerative
     Dosage: DOSAGE: ONE INJECTION, DOSE UNKNOWN. STRENGTH: 100MG
     Route: 041
     Dates: start: 20200129, end: 202001

REACTIONS (2)
  - Cervical dysplasia [Unknown]
  - Renal vascular thrombosis [Unknown]

NARRATIVE: CASE EVENT DATE: 20200130
